FAERS Safety Report 4690467-6 (Version None)
Quarter: 2005Q2

REPORT INFORMATION
  Report Type: 
  Country: None (occurrence: None)
  Receive Date: 20050615
  Receipt Date: 20020118
  Transmission Date: 20051028
  Serious: Yes (Life-Threatening, Hospitalization, Other)
  Sender: FDA-Public Use
  Company Number: 2002AP00162

PATIENT
  Age: 616 Month
  Sex: Female
  Weight: 52 kg

DRUGS (14)
  1. ACCOLATE [Suspect]
     Indication: ASTHMA
     Route: 048
     Dates: start: 20011130, end: 20011228
  2. SPIROPENT [Suspect]
     Route: 048
     Dates: start: 20011130, end: 20011214
  3. PROGRAF [Suspect]
     Route: 048
  4. THEOLONG [Concomitant]
     Route: 048
     Dates: start: 20011130, end: 20011228
  5. FLUTIDE [Concomitant]
     Dosage: 400 RESPIRATORY GRAMS
     Route: 055
     Dates: start: 20011130, end: 20011228
  6. URSO [Concomitant]
     Route: 048
  7. BIOFERMIN R [Concomitant]
     Route: 048
  8. SELBEX [Concomitant]
     Route: 048
  9. MEDROL [Concomitant]
     Route: 048
  10. TORSEMIDE [Concomitant]
     Route: 048
  11. PROGRAF [Concomitant]
     Route: 048
  12. NIFLAN [Concomitant]
  13. DERMOVATE [Concomitant]
  14. MYSLEE [Concomitant]
     Route: 048

REACTIONS (9)
  - AGEUSIA [None]
  - ALANINE AMINOTRANSFERASE INCREASED [None]
  - ASPARTATE AMINOTRANSFERASE INCREASED [None]
  - DRUG LEVEL INCREASED [None]
  - EYE HAEMORRHAGE [None]
  - HEPATIC FUNCTION ABNORMAL [None]
  - MALAISE [None]
  - PLATELET COUNT DECREASED [None]
  - TREMOR [None]
